FAERS Safety Report 14840179 (Version 2)
Quarter: 2018Q2

REPORT INFORMATION
  Report Type: Spontaneous
  Country: BR (occurrence: BR)
  Receive Date: 20180503
  Receipt Date: 20180531
  Transmission Date: 20180711
  Serious: Yes (Death)
  Sender: FDA-Public Use
  Company Number: BR-ROCHE-2112233

PATIENT
  Age: 70 Year
  Sex: Female
  Weight: 153 kg

DRUGS (1)
  1. ESBRIET [Suspect]
     Active Substance: PIRFENIDONE
     Indication: IDIOPATHIC PULMONARY FIBROSIS
     Route: 065

REACTIONS (4)
  - Malaise [Unknown]
  - Death [Fatal]
  - Weight decreased [Unknown]
  - Intercepted drug prescribing error [Unknown]
